FAERS Safety Report 9349753 (Version 2)
Quarter: 2013Q2

REPORT INFORMATION
  Report Type: Spontaneous
  Country: JP (occurrence: None)
  Receive Date: 20130611
  Receipt Date: 20130626
  Transmission Date: 20140414
  Serious: Yes (Hospitalization, Other)
  Sender: FDA-Public Use
  Company Number: 2013STPI000220

PATIENT
  Age: 18 Month
  Sex: Male

DRUGS (1)
  1. LEVOCARNITINE [Suspect]
     Indication: PRODUCT USED FOR UNKNOWN INDICATION
     Route: 048

REACTIONS (9)
  - Respiratory syncytial virus infection [None]
  - Encephalopathy [None]
  - Hypophagia [None]
  - Hypoglycaemia [None]
  - Metabolic acidosis [None]
  - Hyperammonaemia [None]
  - Hepatic enzyme increased [None]
  - Status epilepticus [None]
  - Altered state of consciousness [None]
